FAERS Safety Report 20957377 (Version 1)
Quarter: 2022Q2

REPORT INFORMATION
  Report Type: Spontaneous
  Country: US (occurrence: US)
  Receive Date: 20220614
  Receipt Date: 20220614
  Transmission Date: 20220720
  Serious: Yes (Other)
  Sender: FDA-Public Use
  Company Number: US-009507513-2206USA002929

PATIENT

DRUGS (3)
  1. KEYTRUDA [Suspect]
     Active Substance: PEMBROLIZUMAB
     Indication: Squamous cell carcinoma of the cervix
     Dosage: 200 MILLIGRAM ONCE EVERY 3 WEEKS
  2. NIVOLUMAB [Suspect]
     Active Substance: NIVOLUMAB
     Indication: Squamous cell carcinoma of the cervix
     Dosage: 3 MILLIGRAM/KILOGRAM  EVERY 2 WEEKS/ EVERY 3 WEEKS FOR 4 CYCLES, THEN AS MONOTHERAPY EVERY 4 WEEKS
  3. IPILIMUMAB [Suspect]
     Active Substance: IPILIMUMAB
     Indication: Squamous cell carcinoma of the cervix
     Dosage: 1 MILLIGRAM/KILOGRAM, EVERY 6 WEEKS/ EVERY 3 WEEKS FOR 3 CYCLES

REACTIONS (5)
  - Immune-mediated adrenal insufficiency [Recovered/Resolved]
  - Immune-mediated enterocolitis [Recovered/Resolved]
  - Pancreatitis acute [Recovered/Resolved]
  - Drug resistance [Unknown]
  - Treatment failure [Unknown]
